FAERS Safety Report 25105976 (Version 1)
Quarter: 2025Q1

REPORT INFORMATION
  Report Type: Spontaneous
  Country: US (occurrence: US)
  Receive Date: 20250321
  Receipt Date: 20250321
  Transmission Date: 20250409
  Serious: No
  Sender: EXELA PHARMA SCIENCES
  Company Number: US-EXELAPHARMA-2025EXLA00022

PATIENT

DRUGS (1)
  1. AKOVAZ [Suspect]
     Active Substance: EPHEDRINE SULFATE

REACTIONS (1)
  - No adverse event [Unknown]
